FAERS Safety Report 9176971 (Version 3)
Quarter: 2013Q2

REPORT INFORMATION
  Report Type: Spontaneous
  Country: US (occurrence: US)
  Receive Date: 20130321
  Receipt Date: 20130404
  Transmission Date: 20140414
  Serious: Yes (Other)
  Sender: FDA-Public Use
  Company Number: US-PFIZER INC-2013088979

PATIENT
  Sex: Male

DRUGS (3)
  1. SUTENT [Suspect]
     Indication: NEOPLASM MALIGNANT
     Dosage: UNK
  2. SUTENT [Suspect]
     Dosage: 25 MG, UNK
  3. SUTENT [Suspect]
     Dosage: 12.5 MG, UNK

REACTIONS (4)
  - Second primary malignancy [Unknown]
  - Malignant pituitary tumour [Unknown]
  - Disease progression [Unknown]
  - Neoplasm malignant [Unknown]
